FAERS Safety Report 8461638-8 (Version None)
Quarter: 2012Q2

REPORT INFORMATION
  Report Type: 
  Country: None (occurrence: None)
  Receive Date: 20120625
  Receipt Date: 20120618
  Transmission Date: 20120825
  Serious: Yes (Hospitalization, Other)
  Sender: FDA-Public Use
  Company Number: PHHY2012BR040236

PATIENT
  Sex: Female

DRUGS (10)
  1. SIMVASTATIN [Concomitant]
     Indication: BLOOD CHOLESTEROL INCREASED
     Dosage: 1 TABLET AT NIGHT
     Route: 048
  2. ALENIA [Concomitant]
     Indication: CHRONIC OBSTRUCTIVE PULMONARY DISEASE
     Dosage: 1 DF, BID
  3. FORMOTEROL FUMARATE [Suspect]
     Dosage: UNK UG, UNK
     Dates: start: 20120501, end: 20120501
  4. CORTICOSTEROID NOS [Concomitant]
     Dosage: UNK UKN, UNK
  5. CLONAZEPAM [Concomitant]
     Indication: DEPRESSION
     Dosage: HALF TABLET AT NIGHT
  6. AAS INFANT [Concomitant]
     Indication: BLOOD DISORDER
     Dosage: 1 TABLET AFTER LUNCH
     Route: 048
  7. DORFLEX [Concomitant]
     Indication: PAIN
     Dosage: 1 TABLET DAILY
     Route: 048
  8. FORMOTEROL FUMARATE [Suspect]
     Indication: CHRONIC OBSTRUCTIVE PULMONARY DISEASE
     Dosage: 1 DF, BID
  9. INOSINE PRANOBEX [Concomitant]
     Indication: DEPRESSION
     Dosage: 0.5 DF, QD
  10. INDAPEN [Concomitant]
     Indication: URINARY TRACT DISORDER
     Dosage: 1 TABLET IN THE MORNING
     Route: 048

REACTIONS (7)
  - MUSCULOSKELETAL DISCOMFORT [None]
  - HYPERTENSION [None]
  - DYSPNOEA [None]
  - FATIGUE [None]
  - ARTHRALGIA [None]
  - MALAISE [None]
  - COUGH [None]
